FAERS Safety Report 10282034 (Version 2)
Quarter: 2014Q3

REPORT INFORMATION
  Report Type: Spontaneous
  Country: US (occurrence: US)
  Receive Date: 20140707
  Receipt Date: 20140707
  Transmission Date: 20150326
  Serious: No
  Sender: FDA-Public Use
  Company Number: US-009507513-1403USA013906

PATIENT
  Age: 66 Year
  Sex: Male
  Weight: 106.58 kg

DRUGS (1)
  1. PEGINTRON [Suspect]
     Active Substance: PEGINTERFERON ALFA-2B
     Dosage: 5 C, ONCE WEEKLY
     Dates: start: 20140227

REACTIONS (3)
  - Underdose [Unknown]
  - Overdose [Unknown]
  - Headache [Recovered/Resolved]

NARRATIVE: CASE EVENT DATE: 20140327
